FAERS Safety Report 22315094 (Version 1)
Quarter: 2023Q2

REPORT INFORMATION
  Report Type: Spontaneous
  Country: US (occurrence: US)
  Receive Date: 20230512
  Receipt Date: 20230512
  Transmission Date: 20230722
  Serious: Yes (Hospitalization)
  Sender: FDA-Public Use
  Company Number: US-MYLANLABS-2023M1048752

PATIENT
  Age: 86 Year
  Sex: Female

DRUGS (3)
  1. LEVOTHYROXINE [Suspect]
     Active Substance: LEVOTHYROXINE
     Indication: Hypothyroidism
     Dosage: UNK
     Route: 065
  2. LEVOTHYROXINE [Suspect]
     Active Substance: LEVOTHYROXINE
     Dosage: 3000 MICROGRAM (SHE INGESTED 3000MCG OF LEVOTHYROXINE-SODIUM FOR SUICIDE ATTEMPT)
     Route: 048
  3. LEVOTHYROXINE [Suspect]
     Active Substance: LEVOTHYROXINE
     Dosage: DRUG WAS RESTARTED AFTER NORMALISATION OF T3 AND T4 LEVELS
     Route: 065

REACTIONS (7)
  - Intentional product misuse [Unknown]
  - Suicide attempt [Unknown]
  - Intentional overdose [Unknown]
  - Tachycardia [Recovered/Resolved]
  - Tri-iodothyronine increased [Recovered/Resolved]
  - Thyroxine increased [Recovered/Resolved]
  - Blood pressure increased [Recovered/Resolved]
